FAERS Safety Report 8969023 (Version 2)
Quarter: 2013Q2

REPORT INFORMATION
  Report Type: Report from Study
  Country: JP (occurrence: JP)
  Receive Date: 20121217
  Receipt Date: 20130430
  Transmission Date: 20140414
  Serious: Yes (Death)
  Sender: FDA-Public Use
  Company Number: JP-PFIZER INC-2012312192

PATIENT
  Age: 79 Year
  Sex: Male
  Weight: 58 kg

DRUGS (9)
  1. TEMSIROLIMUS [Suspect]
     Indication: RENAL CELL CARCINOMA
     Dosage: 25 MG, WEEKLY
     Route: 042
     Dates: start: 20120130, end: 20120213
  2. CHLOR-TRIPOLON [Concomitant]
     Indication: PROPHYLAXIS
     Dosage: 10 MG, WEEKLY, ONLY ON DAYS OF TEMSIROLIMUS ADMINISTRATION
     Route: 042
     Dates: start: 20120130, end: 20120213
  3. DECADRON [Concomitant]
     Indication: PROPHYLAXIS
     Dosage: 0.5 MG, 1X/DAY
     Route: 048
     Dates: start: 200906
  4. LASIX [Concomitant]
     Dosage: 40 MG, 1X/DAY
     Route: 048
     Dates: start: 20110224
  5. BAYASPIRIN [Concomitant]
     Dosage: 100 MG, 1X/DAY
     Route: 048
     Dates: start: 20061114
  6. OMEPRAZOLE [Concomitant]
     Dosage: 20 MG, 1X/DAY
     Route: 048
     Dates: start: 20101110
  7. KENTAN [Concomitant]
     Indication: PAIN
     Dosage: 120 MG, 2X/DAY
     Route: 048
     Dates: start: 20090302
  8. REBAMIPIDE [Concomitant]
     Indication: PROPHYLAXIS
     Dosage: 300 MG, 3X/DAY
     Route: 048
     Dates: start: 20090302
  9. SENNOSIDE [Concomitant]
     Indication: CONSTIPATION PROPHYLAXIS
     Dosage: 24 MG, 1X/DAY
     Route: 048
     Dates: start: 20100826

REACTIONS (2)
  - Disease progression [Fatal]
  - Renal cell carcinoma [Fatal]
